FAERS Safety Report 18492797 (Version 4)
Quarter: 2021Q1

REPORT INFORMATION
  Report Type: Spontaneous
  Country: AE (occurrence: AE)
  Receive Date: 20201112
  Receipt Date: 20210225
  Transmission Date: 20210419
  Serious: Yes (Other)
  Sender: FDA-Public Use
  Company Number: AE-REGENERON PHARMACEUTICALS, INC.-2020-87894

PATIENT

DRUGS (1)
  1. EYLEA [Suspect]
     Active Substance: AFLIBERCEPT
     Indication: DIABETIC RETINAL OEDEMA
     Dosage: TOTAL EYLEA DOSE AND LAST DOSE WERE NOT REPORTED
     Dates: start: 20200712

REACTIONS (7)
  - Iridocyclitis [Unknown]
  - Vitritis [Not Recovered/Not Resolved]
  - Ocular hyperaemia [Recovered/Resolved]
  - Uveitis [Recovered/Resolved]
  - Inflammation [Unknown]
  - Retinal vasculitis [Unknown]
  - Eye pain [Recovered/Resolved]

NARRATIVE: CASE EVENT DATE: 20200808
